FAERS Safety Report 14723827 (Version 1)
Quarter: 2018Q2

REPORT INFORMATION
  Report Type: Spontaneous
  Country: IT (occurrence: IT)
  Receive Date: 20180405
  Receipt Date: 20180405
  Transmission Date: 20180711
  Serious: Yes (Hospitalization)
  Sender: FDA-Public Use
  Company Number: IT-MYLANLABS-2018M1021595

PATIENT
  Age: 82 Year
  Sex: Female

DRUGS (2)
  1. VESSEL                             /00111601/ [Concomitant]
     Indication: PRODUCT USED FOR UNKNOWN INDICATION
     Dosage: UNK
  2. TICLOPIDINE [Suspect]
     Active Substance: TICLOPIDINE
     Indication: RETINAL VEIN THROMBOSIS
     Dosage: 500 MG, QD
     Route: 048

REACTIONS (3)
  - Leukopenia [Recovered/Resolved]
  - Anaemia [Recovered/Resolved]
  - Thrombocytopenia [Recovered/Resolved]

NARRATIVE: CASE EVENT DATE: 20170607
